FAERS Safety Report 20837939 (Version 1)
Quarter: 2022Q2

REPORT INFORMATION
  Report Type: Spontaneous
  Country: US (occurrence: US)
  Receive Date: 20220517
  Receipt Date: 20220517
  Transmission Date: 20220720
  Serious: No
  Sender: FDA-Public Use
  Company Number: US-ALLERGAN-2127941US

PATIENT
  Sex: Female
  Weight: 63.492 kg

DRUGS (3)
  1. KYBELLA [Suspect]
     Active Substance: DEOXYCHOLIC ACID
     Indication: Lipolysis procedure
     Dosage: UNK UNK, SINGLE
     Dates: start: 202107, end: 202107
  2. KYBELLA [Suspect]
     Active Substance: DEOXYCHOLIC ACID
     Dosage: UNK UNK, SINGLE
     Dates: start: 202105, end: 202105
  3. KYBELLA [Suspect]
     Active Substance: DEOXYCHOLIC ACID
     Dosage: UNK UNK, SINGLE
     Dates: start: 202103, end: 202103

REACTIONS (2)
  - Injection site swelling [Recovered/Resolved]
  - Drug ineffective [Unknown]
